FAERS Safety Report 5130167-1 (Version None)
Quarter: 2006Q4

REPORT INFORMATION
  Report Type: 
  Country: None (occurrence: None)
  Receive Date: 20061013
  Receipt Date: 20060928
  Transmission Date: 20070319
  Serious: Yes (Other)
  Sender: FDA-Public Use
  Company Number: 2006MP001073

PATIENT
  Age: 61 Year
  Sex: Male
  Weight: 92.8 kg

DRUGS (1)
  1. DACOGEN [Suspect]
     Indication: MYELODYSPLASTIC SYNDROME
     Dosage: 20 MG/M2 QD; IV
     Route: 042
     Dates: start: 20060919, end: 20060923

REACTIONS (8)
  - CONFUSIONAL STATE [None]
  - CONVULSION [None]
  - DIZZINESS [None]
  - MYOCLONUS [None]
  - ORTHOSTATIC HYPOTENSION [None]
  - PLATELET COUNT DECREASED [None]
  - POSTICTAL STATE [None]
  - VISION BLURRED [None]
